FAERS Safety Report 14826956 (Version 3)
Quarter: 2018Q2

REPORT INFORMATION
  Report Type: Spontaneous
  Country: DE (occurrence: DE)
  Receive Date: 20180430
  Receipt Date: 20180626
  Transmission Date: 20180711
  Serious: Yes (Other)
  Sender: FDA-Public Use
  Company Number: DE-009507513-1705DEU015867

PATIENT
  Age: 21 Year
  Sex: Female
  Weight: 67 kg

DRUGS (3)
  1. NUVARING [Suspect]
     Active Substance: ETHINYL ESTRADIOL\ETONOGESTREL
     Indication: CONTRACEPTION
     Dosage: 1 RING, UNK
     Route: 067
     Dates: start: 20160926
  2. FOLIO [Concomitant]
     Active Substance: FOLIC ACID
     Indication: PREGNANCY
     Dosage: 1 DRAGEE, ONCE DAILY
     Route: 048
     Dates: start: 20170508
  3. NUVARING [Suspect]
     Active Substance: ETHINYL ESTRADIOL\ETONOGESTREL
     Dosage: 1 RING, UNK
     Route: 067
     Dates: start: 20170403, end: 20170508

REACTIONS (7)
  - Pregnancy with contraceptive device [Recovered/Resolved]
  - Premature delivery [Unknown]
  - Cervical incompetence [Unknown]
  - Incorrect drug administration duration [Recovered/Resolved]
  - Bacterial vaginosis [Unknown]
  - Hypothyroidism [Unknown]
  - Unintended pregnancy [Recovered/Resolved]

NARRATIVE: CASE EVENT DATE: 2017
